FAERS Safety Report 4325587-9 (Version None)
Quarter: 2004Q1

REPORT INFORMATION
  Report Type: 
  Country: None (occurrence: None)
  Receive Date: 20040329
  Receipt Date: 20040218
  Transmission Date: 20041129
  Serious: Yes (Other)
  Sender: FDA-Public Use
  Company Number: 200410371DE

PATIENT
  Age: 42 Year
  Sex: Female
  Weight: 60 kg

DRUGS (3)
  1. LANTUS [Suspect]
     Indication: DIABETES MELLITUS INSULIN-DEPENDENT
     Dosage: DOSE: 8-0-9
     Route: 058
     Dates: start: 20020801, end: 20040201
  2. DELIX 5 PLUS [Concomitant]
     Indication: HYPERTENSION
     Route: 048
  3. EUTHYROX [Concomitant]
     Indication: AUTOIMMUNE THYROIDITIS
     Route: 048

REACTIONS (1)
  - RETINOPATHY PROLIFERATIVE [None]
